FAERS Safety Report 14934859 (Version 1)
Quarter: 2018Q2

REPORT INFORMATION
  Report Type: Spontaneous
  Country: US (occurrence: US)
  Receive Date: 20180524
  Receipt Date: 20180524
  Transmission Date: 20180711
  Serious: No
  Sender: FDA-Public Use
  Company Number: US-BAYER-2018-092336

PATIENT
  Age: 13 Year
  Sex: Male

DRUGS (3)
  1. CLARITIN [Suspect]
     Active Substance: LORATADINE
     Indication: NASOPHARYNGITIS
  2. CLARITIN [Suspect]
     Active Substance: LORATADINE
     Indication: HYPERSENSITIVITY
     Dosage: UNK
     Route: 048
     Dates: start: 20180511
  3. POLY VI SOL [VIT C,B12,D2,B9,B3,B6,RETINOL,B2,B1 HCL,VIT E] [Concomitant]
     Dosage: UNK

REACTIONS (2)
  - Product use issue [None]
  - Drug ineffective [Unknown]

NARRATIVE: CASE EVENT DATE: 201805
